FAERS Safety Report 8349952-8 (Version None)
Quarter: 2012Q2

REPORT INFORMATION
  Report Type: 
  Country: None (occurrence: None)
  Receive Date: 20120510
  Receipt Date: 20120503
  Transmission Date: 20120825
  Serious: No
  Sender: FDA-Public Use
  Company Number: US-BAYER-2012-043233

PATIENT
  Age: 18 Month
  Sex: Female
  Weight: 10 kg

DRUGS (1)
  1. NAPROXEN SODIUM [Suspect]
     Indication: ACCIDENTAL DRUG INTAKE BY CHILD
     Dosage: 8 DF, UNK
     Route: 048
     Dates: start: 20120501

REACTIONS (1)
  - NO ADVERSE EVENT [None]
